FAERS Safety Report 4704987-9 (Version None)
Quarter: 2005Q2

REPORT INFORMATION
  Report Type: 
  Country: None (occurrence: None)
  Receive Date: 20050630
  Receipt Date: 20050630
  Transmission Date: 20051028
  Serious: No
  Sender: FDA-Public Use
  Company Number: None

PATIENT
  Age: 50 Year
  Sex: Male
  Weight: 105.4 kg

DRUGS (9)
  1. HALOPERIDOL [Suspect]
     Indication: ANXIETY
     Dosage: 2 MG BID ORAL
     Route: 048
  2. HALOPERIDOL [Suspect]
     Indication: SCHIZOAFFECTIVE DISORDER
     Dosage: 2 MG BID ORAL
     Route: 048
  3. LORAZEPAM [Concomitant]
  4. VALPROIC ACID [Concomitant]
  5. CITALOPRAM HYDROBROMIDE [Concomitant]
  6. DIPHENHYDRAMINE HCL [Concomitant]
  7. TRAZODONE HCL [Concomitant]
  8. SIMVASTATIN [Concomitant]
  9. RANITIDINE HCL [Concomitant]

REACTIONS (1)
  - DYSTONIA [None]
